FAERS Safety Report 10411334 (Version 1)
Quarter: 2014Q3

REPORT INFORMATION
  Report Type: Report from Study
  Country: ZA (occurrence: ZA)
  Receive Date: 20140826
  Receipt Date: 20140826
  Transmission Date: 20150326
  Serious: Yes (Other)
  Sender: FDA-Public Use
  Company Number: ZA-BAYER-2014-067583

PATIENT
  Sex: Female

DRUGS (4)
  1. BETAFERON [Suspect]
     Active Substance: INTERFERON BETA-1B
     Dosage: 0.5 ML, UNK
     Dates: start: 200712, end: 2011
  2. CIPRALEX [Concomitant]
     Active Substance: ESCITALOPRAM OXALATE
  3. BACLOPHEN [Concomitant]
  4. ELTROXIN [Concomitant]
     Active Substance: LEVOTHYROXINE

REACTIONS (18)
  - Injection site reaction [Not Recovered/Not Resolved]
  - Hypersensitivity [None]
  - Constipation [None]
  - Bladder discomfort [None]
  - Pain [Recovering/Resolving]
  - Alopecia [Recovering/Resolving]
  - Abdominal discomfort [None]
  - Gait disturbance [Not Recovered/Not Resolved]
  - Injection site mass [None]
  - Weight decreased [None]
  - Pyrexia [Recovering/Resolving]
  - Multiple sclerosis relapse [None]
  - Libido disorder [None]
  - Nasopharyngitis [None]
  - Abasia [Recovering/Resolving]
  - Gait disturbance [None]
  - Cervical dysplasia [Recovering/Resolving]
  - Injection site abscess [None]

NARRATIVE: CASE EVENT DATE: 200712
